FAERS Safety Report 24560844 (Version 1)
Quarter: 2024Q4

REPORT INFORMATION
  Report Type: Spontaneous
  Country: BG (occurrence: BG)
  Receive Date: 20241029
  Receipt Date: 20241029
  Transmission Date: 20250115
  Serious: Yes (Other)
  Sender: PFIZER
  Company Number: BG-PFIZER INC-PV202400137948

PATIENT
  Age: 46 Year
  Sex: Female

DRUGS (3)
  1. TUKYSA [Suspect]
     Active Substance: TUCATINIB
     Indication: Breast cancer metastatic
     Dosage: 2X300MG/6TH LINE OF THERAPY
     Route: 048
     Dates: start: 202402
  2. TRASTUZUMAB [Concomitant]
     Active Substance: TRASTUZUMAB
     Indication: Breast cancer metastatic
     Dosage: 600 MG/6TH LINE OF THERAPY
     Route: 058
     Dates: start: 202402
  3. CAPECITABINE [Concomitant]
     Active Substance: CAPECITABINE
     Indication: Breast cancer metastatic
     Dosage: 2X1500MG 1-14/21D/6TH LINE OF THERAPY
     Dates: start: 202402

REACTIONS (3)
  - Blood bilirubin increased [Recovered/Resolved]
  - Arthralgia [Recovered/Resolved]
  - Toxicity to various agents [Recovered/Resolved]
